FAERS Safety Report 7577050-X (Version None)
Quarter: 2011Q2

REPORT INFORMATION
  Report Type: 
  Country: None (occurrence: None)
  Receive Date: 20110628
  Receipt Date: 20110623
  Transmission Date: 20111010
  Serious: No
  Sender: FDA-Public Use
  Company Number: US-PFIZER INC-2011140150

PATIENT
  Age: 85 Year
  Sex: Female

DRUGS (1)
  1. ARTHROTEC [Suspect]
     Indication: PAIN MANAGEMENT
     Dosage: 50/200 MG, UNK

REACTIONS (1)
  - OEDEMA PERIPHERAL [None]
